FAERS Safety Report 10728014 (Version 1)
Quarter: 2015Q1

REPORT INFORMATION
  Report Type: Spontaneous
  Country: NZ (occurrence: NZ)
  Receive Date: 20150121
  Receipt Date: 20150121
  Transmission Date: 20150721
  Serious: Yes (Hospitalization)
  Sender: FDA-Public Use
  Company Number: PHHY2015NZ007294

PATIENT
  Age: 2 Year
  Weight: 9.5 kg

DRUGS (1)
  1. PARACETAMOL [Suspect]
     Active Substance: ACETAMINOPHEN
     Indication: PRODUCT USED FOR UNKNOWN INDICATION
     Dosage: 82 MG/KG, QD (AT 4 HOURLY INTERVAL)
     Route: 065

REACTIONS (2)
  - Acute hepatic failure [Unknown]
  - Incorrect dose administered [Unknown]
